FAERS Safety Report 7110138-6 (Version None)
Quarter: 2010Q4

REPORT INFORMATION
  Report Type: 
  Country: None (occurrence: None)
  Receive Date: 20101112
  Receipt Date: 20101027
  Transmission Date: 20110411
  Serious: Yes (Hospitalization, Disabling)
  Sender: FDA-Public Use
  Company Number: 1-17293505

PATIENT
  Age: 67 Year
  Sex: Female

DRUGS (18)
  1. QUALAQUIN [Suspect]
     Indication: MUSCLE SPASMS
     Dosage: AS NEEDED, ORAL
     Route: 048
     Dates: start: 20080721, end: 20080721
  2. QUININE SULFATE [Suspect]
     Indication: MUSCLE SPASMS
     Dosage: AS NEEDED, ORAL
     Route: 048
     Dates: start: 20050926
  3. QUININE SULFATE [Suspect]
     Indication: MUSCLE SPASMS
     Dosage: AS NEEDED, ORAL
     Route: 048
  4. ACCUPRIL [Concomitant]
  5. AVANDIA [Concomitant]
  6. GLUCOTROL XL [Concomitant]
  7. METFORMIN [Concomitant]
  8. NEURONTIN [Concomitant]
  9. LORTAB [Concomitant]
  10. ULTRAM [Concomitant]
  11. CYANOCOBALAMIN [Concomitant]
  12. BYETTA [Concomitant]
  13. PRECOSE [Concomitant]
  14. HUMALOG [Concomitant]
  15. ENALAPRIL MALEATE [Concomitant]
  16. SIMVASTATIN [Concomitant]
  17. TRICOR [Concomitant]
  18. LIPITOR [Concomitant]

REACTIONS (24)
  - ANGINA PECTORIS [None]
  - ANXIETY [None]
  - ARRHYTHMIA [None]
  - ARTERIAL STENOSIS [None]
  - ARTERIOSCLEROSIS [None]
  - ATRIAL FIBRILLATION [None]
  - ATRIOVENTRICULAR BLOCK [None]
  - BLOOD CHOLESTEROL INCREASED [None]
  - BLOOD DISORDER [None]
  - BLOOD TRIGLYCERIDES INCREASED [None]
  - COAGULOPATHY [None]
  - CORONARY ARTERY DISEASE [None]
  - DRUG HYPERSENSITIVITY [None]
  - EMOTIONAL DISTRESS [None]
  - FEAR [None]
  - GRIEF REACTION [None]
  - HAEMORRHAGE [None]
  - MENTAL DISORDER [None]
  - MYOCARDIAL INFARCTION [None]
  - NERVOUSNESS [None]
  - PAIN [None]
  - SKIN DISORDER [None]
  - UNEVALUABLE EVENT [None]
  - VISUAL IMPAIRMENT [None]
